FAERS Safety Report 10490041 (Version 6)
Quarter: 2014Q4

REPORT INFORMATION
  Report Type: Spontaneous
  Country: US (occurrence: US)
  Receive Date: 20141002
  Receipt Date: 20141222
  Transmission Date: 20150528
  Serious: Yes (Hospitalization, Other)
  Sender: FDA-Public Use
  Company Number: US-MYLANLABS-2014M1005438

PATIENT

DRUGS (8)
  1. LORAZEPAM. [Suspect]
     Active Substance: LORAZEPAM
     Indication: NAUSEA
  2. LORAZEPAM. [Suspect]
     Active Substance: LORAZEPAM
     Indication: NAUSEA
  3. WELLBUTRIN [Suspect]
     Active Substance: BUPROPION HYDROCHLORIDE
     Indication: DEPRESSION
     Dosage: UNK
  4. LORAZEPAM. [Suspect]
     Active Substance: LORAZEPAM
     Indication: INSOMNIA
  5. LORAZEPAM. [Suspect]
     Active Substance: LORAZEPAM
     Indication: OFF LABEL USE
  6. LORAZEPAM. [Suspect]
     Active Substance: LORAZEPAM
     Indication: INSOMNIA
     Dosage: 1-2MG QD
     Route: 048
     Dates: start: 201209, end: 20140910
  7. LORAZEPAM. [Suspect]
     Active Substance: LORAZEPAM
     Indication: OFF LABEL USE
  8. PROZAC [Suspect]
     Active Substance: FLUOXETINE HYDROCHLORIDE
     Indication: DEPRESSION
     Dosage: UNK

REACTIONS (48)
  - Hallucination [Recovered/Resolved]
  - Painful defaecation [Recovered/Resolved]
  - Fall [Recovered/Resolved]
  - Vision blurred [Recovered/Resolved]
  - Feeling abnormal [Recovering/Resolving]
  - Psychotic disorder [Recovered/Resolved]
  - Hot flush [Recovering/Resolving]
  - Muscular weakness [Recovered/Resolved]
  - Irritability [Recovered/Resolved]
  - Suicidal ideation [Not Recovered/Not Resolved]
  - Anger [Recovering/Resolving]
  - Alopecia [Recovering/Resolving]
  - Pain in extremity [Recovering/Resolving]
  - Diarrhoea [Recovered/Resolved]
  - Gastric disorder [Recovering/Resolving]
  - Wrong technique in drug usage process [Recovered/Resolved]
  - Pulmonary pain [Not Recovered/Not Resolved]
  - Muscle spasms [Recovered/Resolved]
  - Self-injurious ideation [Recovered/Resolved]
  - Constipation [Recovering/Resolving]
  - Dizziness [Recovered/Resolved]
  - Photophobia [Recovered/Resolved]
  - Back pain [Recovering/Resolving]
  - Fatigue [Recovered/Resolved]
  - Dementia [Recovering/Resolving]
  - Depersonalisation [Recovering/Resolving]
  - Drug withdrawal syndrome [Recovering/Resolving]
  - Gait disturbance [Recovering/Resolving]
  - Antisocial behaviour [Not Recovered/Not Resolved]
  - Dyskinesia [Recovered/Resolved]
  - Depressed mood [Recovering/Resolving]
  - Drug dependence [Not Recovered/Not Resolved]
  - Urticaria [Recovered/Resolved]
  - Neuropathy peripheral [Recovering/Resolving]
  - Lymphoedema [Recovered/Resolved]
  - Vomiting [Recovered/Resolved]
  - Drug interaction [Recovered/Resolved]
  - Dry mouth [Recovered/Resolved]
  - Confusional state [Recovered/Resolved]
  - White blood cell count decreased [Recovered/Resolved]
  - Depression [Recovering/Resolving]
  - Decreased appetite [Not Recovered/Not Resolved]
  - Crying [Recovering/Resolving]
  - Dyspnoea [Recovered/Resolved]
  - Dysphagia [Recovered/Resolved]
  - Aggression [Recovered/Resolved]
  - Malaise [Recovered/Resolved]
  - Rash [Recovered/Resolved]

NARRATIVE: CASE EVENT DATE: 2012
